FAERS Safety Report 8523124-6 (Version None)
Quarter: 2012Q3

REPORT INFORMATION
  Report Type: 
  Country: None (occurrence: None)
  Receive Date: 20120720
  Receipt Date: 20120716
  Transmission Date: 20120928
  Serious: No
  Sender: FDA-Public Use
  Company Number: US-PFIZER INC-2012173308

PATIENT
  Sex: Male
  Weight: 69.388 kg

DRUGS (4)
  1. XALKORI [Suspect]
     Dosage: 250 MG, 2X/DAY
     Route: 048
  2. AREDIA [Concomitant]
     Dosage: 30 MG, UNK
  3. LOVAZA [Concomitant]
     Dosage: 1000 MG, UNK
  4. CALCIUM [Concomitant]
     Dosage: 500

REACTIONS (1)
  - OEDEMA PERIPHERAL [None]
